FAERS Safety Report 7391570-2 (Version None)
Quarter: 2011Q2

REPORT INFORMATION
  Report Type: 
  Country: None (occurrence: None)
  Receive Date: 20110404
  Receipt Date: 20101025
  Transmission Date: 20111010
  Serious: Yes (Death)
  Sender: FDA-Public Use
  Company Number: US-EISAI INC-E7272-00075-SPO-US

PATIENT
  Age: 66 Year
  Sex: Male

DRUGS (6)
  1. ACETAMINOPHEN [Concomitant]
     Indication: PREMEDICATION
     Dates: start: 20100802, end: 20100804
  2. ONTAK [Suspect]
     Indication: T-CELL LYMPHOMA
     Route: 041
     Dates: start: 20100802, end: 20100804
  3. DECADRON [Concomitant]
     Indication: PREMEDICATION
     Dates: start: 20100802, end: 20100804
  4. ZOFRAN [Concomitant]
     Indication: PREMEDICATION
     Dates: start: 20100802, end: 20100804
  5. BENADRYL [Concomitant]
     Indication: PREMEDICATION
     Dates: start: 20100802, end: 20100804
  6. PEPCID [Concomitant]
     Indication: PREMEDICATION
     Dates: start: 20100802, end: 20100804

REACTIONS (2)
  - CARDIAC ARREST [None]
  - CAPILLARY LEAK SYNDROME [None]
